FAERS Safety Report 18012955 (Version 2)
Quarter: 2022Q4

REPORT INFORMATION
  Report Type: Report from Study
  Country: FR (occurrence: FR)
  Receive Date: 20200713
  Receipt Date: 20221209
  Transmission Date: 20230113
  Serious: Yes (Death)
  Sender: FDA-Public Use
  Company Number: FR-BAXTER-2020BAX014258

PATIENT
  Age: 75 Year
  Sex: Male

DRUGS (4)
  1. DOXORUBICIN HYDROCHLORIDE [Suspect]
     Active Substance: DOXORUBICIN HYDROCHLORIDE
     Indication: Plasma cell myeloma
     Dosage: 30 MG/M2/DOSE 1 DOSE(S)/WEEK 1 WEEK(S)/CYCLE, LINE NO. 2, THERAPY DURATION: 6.7MONTHS
     Route: 065
     Dates: end: 20181104
  2. CYCLOPHOSPHAMIDE [Suspect]
     Active Substance: CYCLOPHOSPHAMIDE
     Indication: Plasma cell myeloma
     Dosage: 500 MG/DOSE 1 DOSE(S)/WEEK 2 WEEK(S)/CYCLE, LINE NO. 2, THERAPY DURATION: 6.7MONTHS
     Route: 065
     Dates: end: 20181104
  3. DEXAMETHASONE [Suspect]
     Active Substance: DEXAMETHASONE
     Indication: Plasma cell myeloma
     Dosage: 20 MG/DOSE 1 DOSE(S)/WEEK 2WEEK(S)/CYCLE, LINE NO. 2, THERAPY DURATION: 6.7MONTHS
     Route: 065
     Dates: end: 20181104
  4. POMALIDOMIDE [Suspect]
     Active Substance: POMALIDOMIDE
     Indication: Plasma cell myeloma
     Dosage: 4MG/DOSE 7DOSE(S)/WEEK 3WEEK(S)/CYCLE, LINE NO. 2, THERAPY DURATION: 6.7MONTHS
     Route: 065
     Dates: end: 20181104

REACTIONS (1)
  - Disease progression [Fatal]
